FAERS Safety Report 5116305-5 (Version None)
Quarter: 2006Q3

REPORT INFORMATION
  Report Type: 
  Country: None (occurrence: None)
  Receive Date: 20060927
  Receipt Date: 20060921
  Transmission Date: 20061208
  Serious: Yes (Hospitalization)
  Sender: FDA-Public Use
  Company Number: JP-ROXANE LABORATORIES, INC-2006-BP-11091RO

PATIENT
  Age: 52 Year
  Sex: Male

DRUGS (4)
  1. PREDNISONE [Suspect]
     Indication: PEMPHIGOID
     Dosage: 35 MG/DAY
  2. PREDNISONE [Suspect]
  3. CYCLOSPORINE [Suspect]
     Indication: PEMPHIGOID
  4. METHYLPREDNISOLONE [Suspect]
     Indication: PEMPHIGOID
     Dosage: 1000 MG/DAY X 3 DAYS

REACTIONS (4)
  - DISEASE PROGRESSION [None]
  - DRUG INEFFECTIVE [None]
  - EXTRADURAL ABSCESS [None]
  - STAPHYLOCOCCAL INFECTION [None]
